FAERS Safety Report 11399845 (Version 1)
Quarter: 2015Q3

REPORT INFORMATION
  Report Type: Spontaneous
  Country: DE (occurrence: DE)
  Receive Date: 20150820
  Receipt Date: 20150820
  Transmission Date: 20151125
  Serious: Yes (Hospitalization, Other)
  Sender: FDA-Public Use
  Company Number: DE-GLAXOSMITHKLINE INC.-DE2015GSK106822

PATIENT
  Age: 65 Year
  Sex: Female

DRUGS (13)
  1. CARBAMAZEPIN [Concomitant]
     Active Substance: CARBAMAZEPINE
     Dosage: 400 MG, BID
  2. CYCLO-PROGYNOVA [Concomitant]
     Dosage: UNK
  3. NOVAMINSULFON [Concomitant]
     Active Substance: METAMIZOLE
     Dosage: 500 MG, PRN
  4. SIMVASTATIN-RATIOPHARM [Concomitant]
     Dosage: 20 MG, QD
  5. CITALOPRAM [Concomitant]
     Active Substance: CITALOPRAM HYDROBROMIDE
     Dosage: 20 MG, QD
  6. RIVOTRIL [Concomitant]
     Active Substance: CLONAZEPAM
     Dosage: 2 MG, QD
  7. SEEBRI BREEZHALER [Concomitant]
     Active Substance: GLYCOPYRROLATE
     Dosage: 44 UNK, QD
  8. ANORO ELLIPTA [Suspect]
     Active Substance: UMECLIDINIUM BROMIDE\VILANTEROL TRIFENATATE
     Indication: CHRONIC OBSTRUCTIVE PULMONARY DISEASE
     Dosage: UNK
     Dates: start: 20150707, end: 20150712
  9. LEVETIRACETAM. [Concomitant]
     Active Substance: LEVETIRACETAM
     Dosage: 500 MG, BID
  10. ASS 100 [Concomitant]
     Active Substance: ASPIRIN
     Dosage: 100 MG, QD
  11. L-THYROX HEXAL [Concomitant]
     Dosage: 62.5 UNK, QD
  12. LERCANIDIPIN [Concomitant]
     Dosage: 10 MG, QD
  13. RAMILICH [Concomitant]
     Active Substance: RAMIPRIL
     Dosage: 5 MG, BID

REACTIONS (2)
  - Trigeminal nerve disorder [Unknown]
  - Partial seizures [Recovered/Resolved]

NARRATIVE: CASE EVENT DATE: 20150707
